FAERS Safety Report 9472248 (Version 3)
Quarter: 2013Q4

REPORT INFORMATION
  Report Type: Spontaneous
  Country: US (occurrence: US)
  Receive Date: 20130823
  Receipt Date: 20131217
  Transmission Date: 20140711
  Serious: Yes (Hospitalization, Other)
  Sender: FDA-Public Use
  Company Number: US-ASTRAZENECA-2009SE14917

PATIENT
  Age: 28983 Day
  Sex: Female
  Weight: 57.6 kg

DRUGS (14)
  1. NEXIUM [Suspect]
     Indication: GASTROOESOPHAGEAL REFLUX DISEASE
     Route: 048
  2. NEXIUM [Suspect]
     Indication: HIATUS HERNIA
     Route: 048
  3. FASLODEX [Suspect]
     Indication: BREAST CANCER
     Route: 030
     Dates: start: 201212
  4. MORPHIN [Suspect]
     Indication: PAIN
     Dosage: EVERY SIX HOURS
     Route: 048
  5. MORPHIN [Suspect]
     Indication: NEURALGIA
     Dosage: EVERY SIX HOURS
     Route: 048
  6. MORPHIN [Suspect]
     Indication: PAIN
     Route: 048
  7. MORPHIN [Suspect]
     Indication: NEURALGIA
     Route: 048
  8. MORPHIN [Suspect]
     Indication: PAIN
     Route: 042
  9. MORPHIN [Suspect]
     Indication: NEURALGIA
     Route: 042
  10. OMEPRAZOLE [Concomitant]
  11. MAXAIR [Concomitant]
     Indication: ASTHMA
     Dosage: PRN
     Route: 055
  12. AZMACORT [Concomitant]
     Dosage: 4 PUFFS BID
     Route: 045
  13. HERCEPTIN [Concomitant]
  14. ZOFRAN [Concomitant]

REACTIONS (16)
  - Sciatica [Recovering/Resolving]
  - Injection site bruising [Unknown]
  - Weight bearing difficulty [Recovering/Resolving]
  - Neuralgia [Unknown]
  - Injection site haemorrhage [Unknown]
  - Injection site pain [Unknown]
  - Abdominal distension [Recovered/Resolved]
  - Dyspepsia [Recovered/Resolved]
  - Chest pain [Recovered/Resolved]
  - Back pain [Recovered/Resolved]
  - Burning sensation [Unknown]
  - Mobility decreased [Unknown]
  - Constipation [Unknown]
  - Headache [Unknown]
  - Abdominal pain [Recovered/Resolved]
  - Drug ineffective [Unknown]
